FAERS Safety Report 7691640-5 (Version None)
Quarter: 2011Q3

REPORT INFORMATION
  Report Type: 
  Country: None (occurrence: None)
  Receive Date: 20110818
  Receipt Date: 20110816
  Transmission Date: 20111222
  Serious: Yes (Life-Threatening, Hospitalization)
  Sender: FDA-Public Use
  Company Number: DE-ABBOTT-06P-062-0323848-00

PATIENT
  Age: 75 Year
  Sex: Female

DRUGS (1)
  1. HUMIRA [Suspect]
     Indication: RHEUMATOID ARTHRITIS
     Route: 058
     Dates: start: 20040401, end: 20100601

REACTIONS (12)
  - CORONARY ARTERY DISEASE [None]
  - OSTEOPOROSIS [None]
  - GASTRITIS EROSIVE [None]
  - THORACIC VERTEBRAL FRACTURE [None]
  - RENAL FAILURE CHRONIC [None]
  - AORTIC VALVE REPLACEMENT [None]
  - GOUT [None]
  - ARTERIOVENOUS SHUNT OPERATION [None]
  - NEPHROGENIC ANAEMIA [None]
  - OSTEOARTHRITIS [None]
  - MITRAL VALVE REPLACEMENT [None]
  - VASCULAR OPERATION [None]
